FAERS Safety Report 14518135 (Version 1)
Quarter: 2018Q1

REPORT INFORMATION
  Report Type: Report from Study
  Country: AU (occurrence: AU)
  Receive Date: 20180212
  Receipt Date: 20180212
  Transmission Date: 20180509
  Serious: Yes (Life-Threatening, Hospitalization)
  Sender: FDA-Public Use
  Company Number: AU-JNJFOC-20180130401

PATIENT
  Age: 60 Year
  Sex: Female
  Weight: 109 kg

DRUGS (2)
  1. DARZALEX [Suspect]
     Active Substance: DARATUMUMAB
     Indication: PLASMA CELL MYELOMA
     Dosage: WKLY W1-8, EVERY 2ND WK W9-24, AND EVERY 4 WKS W25 AND ONWARDS, NO. OF REPEATS: X7 (TO COVER W1-8)
     Route: 042
  2. DARZALEX [Suspect]
     Active Substance: DARATUMUMAB
     Indication: PLASMA CELL MYELOMA
     Dosage: DOSE#2
     Route: 042
     Dates: start: 20180129

REACTIONS (2)
  - Infusion related reaction [Unknown]
  - Bronchospasm [Recovered/Resolved]

NARRATIVE: CASE EVENT DATE: 20180122
